FAERS Safety Report 12876876 (Version 1)
Quarter: 2016Q4

REPORT INFORMATION
  Report Type: Spontaneous
  Country: US (occurrence: US)
  Receive Date: 20161022
  Receipt Date: 20161022
  Transmission Date: 20170207
  Serious: No
  Sender: FDA-Public Use
  Company Number: None

PATIENT
  Age: 70 Year
  Sex: Female
  Weight: 81 kg

DRUGS (1)
  1. CIPROFLOXCAIN [Suspect]
     Active Substance: CIPROFLOXACIN
     Indication: LOWER RESPIRATORY TRACT INFECTION
     Route: 048

REACTIONS (10)
  - Depression [None]
  - Insomnia [None]
  - Neuralgia [None]
  - Amnesia [None]
  - Mental impairment [None]
  - Nervous system disorder [None]
  - Gastritis erosive [None]
  - Muscle atrophy [None]
  - General physical health deterioration [None]
  - Chronic fatigue syndrome [None]
